FAERS Safety Report 6425568-5 (Version None)
Quarter: 2009Q4

REPORT INFORMATION
  Report Type: 
  Country: None (occurrence: None)
  Receive Date: 20091103
  Receipt Date: 20091022
  Transmission Date: 20100525
  Serious: Yes (Other)
  Sender: FDA-Public Use
  Company Number: JP-PFIZER INC-2009288881

PATIENT
  Age: 18 Year

DRUGS (3)
  1. GABAPEN [Suspect]
     Route: 048
     Dates: start: 20090101
  2. DEPAKENE [Concomitant]
     Route: 048
     Dates: end: 20090101
  3. MYSTAN [Concomitant]
     Route: 048

REACTIONS (2)
  - DYSKINESIA [None]
  - DYSSTASIA [None]
